FAERS Safety Report 18687808 (Version 5)
Quarter: 2021Q1

REPORT INFORMATION
  Report Type: Spontaneous
  Country: JP (occurrence: JP)
  Receive Date: 20201231
  Receipt Date: 20210304
  Transmission Date: 20210419
  Serious: Yes (Hospitalization, Other)
  Sender: FDA-Public Use
  Company Number: JP-PFIZER INC-2020338320

PATIENT
  Age: 46 Year
  Sex: Female

DRUGS (5)
  1. AZULFIDINE [Concomitant]
     Active Substance: SULFASALAZINE
     Dosage: UNK
     Route: 048
     Dates: start: 202001
  2. INLYTA [Suspect]
     Active Substance: AXITINIB
     Indication: RENAL CANCER RECURRENT
     Dosage: 5 MG, 2X/DAY
     Route: 048
  3. KEYTRUDA [Concomitant]
     Active Substance: PEMBROLIZUMAB
     Dosage: UNK
     Dates: start: 202011, end: 2020
  4. INLYTA [Suspect]
     Active Substance: AXITINIB
     Dosage: 14 MG
     Route: 048
     Dates: start: 2020, end: 2020
  5. INLYTA [Suspect]
     Active Substance: AXITINIB
     Dosage: 12 MG, DAILY (7 MG IN THE MORNING, 5 MG IN THE EVENING)
     Route: 048
     Dates: start: 20200901, end: 2020

REACTIONS (13)
  - Hypothyroidism [Not Recovered/Not Resolved]
  - Depressed mood [Unknown]
  - Palmar-plantar erythrodysaesthesia syndrome [Recovering/Resolving]
  - Movement disorder [Unknown]
  - Fatigue [Unknown]
  - Off label use [Unknown]
  - Hepatic function abnormal [Recovering/Resolving]
  - Diarrhoea [Recovered/Resolved]
  - Faeces soft [Unknown]
  - Blood pressure diastolic increased [Unknown]
  - Decreased appetite [Unknown]
  - Pain [Unknown]
  - Rheumatic disorder [Unknown]

NARRATIVE: CASE EVENT DATE: 20200901
